FAERS Safety Report 5886210-5 (Version None)
Quarter: 2008Q3

REPORT INFORMATION
  Report Type: 
  Country: None (occurrence: None)
  Receive Date: 20080912
  Receipt Date: 20080901
  Transmission Date: 20090109
  Serious: Yes (Death, Hospitalization)
  Sender: FDA-Public Use
  Company Number: 100#08#2008-04450

PATIENT
  Age: 72 Year
  Sex: Male

DRUGS (5)
  1. METFORMIN HCL [Suspect]
     Indication: DRUG USE FOR UNKNOWN INDICATION
     Dosage: 1000 MG THREE TIMES DAILY
  2. ENALAPRIL MALEATE [Suspect]
     Indication: DRUG USE FOR UNKNOWN INDICATION
  3. TOLBUTAMIDE [Concomitant]
  4. SIMVASTATIN [Concomitant]
  5. HYDROCHLOROTHIAZIDE [Concomitant]

REACTIONS (11)
  - ABDOMINAL DISCOMFORT [None]
  - CATHETER SEPSIS [None]
  - COMA [None]
  - CONTINUOUS HAEMODIAFILTRATION [None]
  - EXTREMITY NECROSIS [None]
  - HAEMODYNAMIC INSTABILITY [None]
  - ILEUS [None]
  - LACTIC ACIDOSIS [None]
  - PNEUMONIA [None]
  - RENAL FAILURE [None]
  - RESPIRATORY DISTRESS [None]
